FAERS Safety Report 19501604 (Version 1)
Quarter: 2021Q3

REPORT INFORMATION
  Report Type: Spontaneous
  Country: DE (occurrence: DE)
  Receive Date: 20210707
  Receipt Date: 20210707
  Transmission Date: 20211014
  Serious: Yes (Hospitalization)
  Sender: FDA-Public Use
  Company Number: DE-TEVA-2021-DE-1929862

PATIENT
  Age: 73 Year
  Sex: Male

DRUGS (8)
  1. ACETYLSALICYLSAURE [Concomitant]
     Active Substance: ASPIRIN
     Dosage: 100 MILLIGRAM DAILY; 0?1?0?0
     Route: 048
  2. NITROLINGUAL [Concomitant]
     Active Substance: NITROGLYCERIN
     Dosage: 0.4 MG, IF NECESSARY, SPRAY
     Route: 060
  3. ATORVASTATIN [Concomitant]
     Active Substance: ATORVASTATIN
     Dosage: 40 MILLIGRAM DAILY; 0?0?1?0
     Route: 048
  4. METOPROLOL. [Concomitant]
     Active Substance: METOPROLOL
     Dosage: 23.75 MILLIGRAM DAILY; 1?0?0?0
     Route: 048
  5. HYDROCHLOROTHIAZID [Suspect]
     Active Substance: HYDROCHLOROTHIAZIDE
     Dosage: .5 DOSAGE FORMS DAILY; 25 MG, 0.5?0?0?0
     Route: 048
  6. RAMIPRIL. [Suspect]
     Active Substance: RAMIPRIL
     Dosage: 10 MILLIGRAM DAILY; 1?0?1?0
     Route: 048
  7. ULTIBRO BREEZHALER 85MIKROGRAMM/43MIKROGRAMM [Concomitant]
     Dosage: 1 DOSAGE FORMS DAILY; 0?0?1?0, CAPSULES FOR INHALATION
     Route: 055
  8. BRIMICA [Concomitant]
     Active Substance: ACLIDINIUM BROMIDE\FORMOTEROL FUMARATE
     Dosage: 2 DOSAGE FORMS DAILY; 1?0?1?0
     Route: 055

REACTIONS (4)
  - Product prescribing error [Unknown]
  - Fall [Unknown]
  - Dizziness [Unknown]
  - Dyspnoea [Unknown]
